FAERS Safety Report 16736033 (Version 1)
Quarter: 2019Q3

REPORT INFORMATION
  Report Type: Spontaneous
  Country: CN (occurrence: CN)
  Receive Date: 20190823
  Receipt Date: 20190823
  Transmission Date: 20191005
  Serious: Yes (Other)
  Sender: FDA-Public Use
  Company Number: CN-009507513-1908CHN007973

PATIENT
  Age: 2 Year
  Sex: Female
  Weight: 11 kg

DRUGS (2)
  1. SINGULAIR [Suspect]
     Active Substance: MONTELUKAST SODIUM
     Indication: UPPER RESPIRATORY TRACT INFECTION
     Dosage: 4 MILLIGRAM, QN (EVERY NIGHT), X 3 DAYS
     Route: 048
     Dates: start: 20190812, end: 20190813
  2. ACETAMINOPHEN (+) CHLORPHENIRAMINE MALEATE [Suspect]
     Active Substance: ACETAMINOPHEN\CHLORPHENIRAMINE MALEATE
     Dosage: 0.5 PACK, TID X 3 DAYS
     Route: 048
     Dates: start: 20190812, end: 20190814

REACTIONS (4)
  - Bronchitis [Unknown]
  - Urticaria [Recovering/Resolving]
  - Product use in unapproved indication [Unknown]
  - Pneumonia mycoplasmal [Unknown]

NARRATIVE: CASE EVENT DATE: 201908
